FAERS Safety Report 14165337 (Version 3)
Quarter: 2017Q4

REPORT INFORMATION
  Report Type: Report from Study
  Country: BR (occurrence: BR)
  Receive Date: 20171107
  Receipt Date: 20171206
  Transmission Date: 20180321
  Serious: Yes (Other)
  Sender: FDA-Public Use
  Company Number: BR-GLAXOSMITHKLINE-BR2017GSK147787

PATIENT

DRUGS (4)
  1. BELIMUMAB [Suspect]
     Active Substance: BELIMUMAB
     Dosage: 720 MG, CYC
     Dates: start: 20170509
  2. BELIMUMAB [Suspect]
     Active Substance: BELIMUMAB
     Dosage: 720 MG, CYC
     Dates: start: 20170814
  3. BELIMUMAB [Suspect]
     Active Substance: BELIMUMAB
     Indication: SYSTEMIC LUPUS ERYTHEMATOSUS
     Dosage: 720 MG, CYC
     Dates: start: 20170303
  4. BELIMUMAB [Suspect]
     Active Substance: BELIMUMAB
     Dosage: 800 MG, CYC
     Dates: start: 201711

REACTIONS (7)
  - Condition aggravated [Unknown]
  - Respiratory tract infection [Unknown]
  - Inappropriate schedule of drug administration [Unknown]
  - Skin disorder [Unknown]
  - Systemic lupus erythematosus disease activity index increased [Unknown]
  - Arthralgia [Unknown]
  - Diabetic metabolic decompensation [Unknown]
